FAERS Safety Report 9576024 (Version 1)
Quarter: 2013Q4

REPORT INFORMATION
  Report Type: Spontaneous
  Country: US (occurrence: US)
  Receive Date: 20131001
  Receipt Date: 20131001
  Transmission Date: 20140711
  Serious: No
  Sender: FDA-Public Use
  Company Number: US-AMGEN-USASP2013000498

PATIENT
  Age: 56 Year
  Sex: Female
  Weight: 80.27 kg

DRUGS (7)
  1. ENBREL [Suspect]
     Indication: RHEUMATOID ARTHRITIS
     Dosage: 50 MG, QWK
     Route: 058
  2. METHOTREXATE [Concomitant]
     Dosage: 2.5 MG, UNK
     Route: 048
  3. PROZAC [Concomitant]
     Dosage: 20 MG, UNK
     Route: 048
  4. GLUCOPHAGE [Concomitant]
     Dosage: 850 MG, UNK
     Route: 048
  5. PERCOCET                           /00867901/ [Concomitant]
     Dosage: 325 MG, UNK
     Route: 048
  6. FOLIC ACID [Concomitant]
     Dosage: UNK
     Route: 048
  7. DIETHYLPROPION [Concomitant]
     Dosage: 25 MG, UNK
     Route: 048

REACTIONS (1)
  - Injection site pain [Unknown]
